FAERS Safety Report 9535790 (Version 1)
Quarter: 2013Q3

REPORT INFORMATION
  Report Type: Spontaneous
  Country: US (occurrence: US)
  Receive Date: 20130919
  Receipt Date: 20130919
  Transmission Date: 20140515
  Serious: Yes (Other)
  Sender: FDA-Public Use
  Company Number: US-JNJFOC-20130905036

PATIENT
  Age: 64 Year
  Sex: Female
  Weight: 77.11 kg

DRUGS (1)
  1. BENGAY ULTRA STRENGTH [Suspect]
     Indication: PAIN
     Dosage: ONE QUARTER SIZE
     Route: 061

REACTIONS (3)
  - Chemical injury [Recovering/Resolving]
  - Skin discolouration [Recovering/Resolving]
  - Skin fissures [Recovering/Resolving]
